FAERS Safety Report 21727682 (Version 1)
Quarter: 2022Q4

REPORT INFORMATION
  Report Type: Spontaneous
  Country: US (occurrence: None)
  Receive Date: 20221213
  Receipt Date: 20221213
  Transmission Date: 20230112
  Serious: Yes (Life-Threatening, Hospitalization)
  Sender: FDA-Public Use
  Company Number: None

PATIENT
  Age: 88 Year
  Sex: Female
  Weight: 62 kg

DRUGS (4)
  1. DOXYCYCLINE [Suspect]
     Active Substance: DOXYCYCLINE
     Indication: Product used for unknown indication
     Dosage: FREQUENCY : TWICE A DAY;?
     Route: 042
     Dates: start: 20220605, end: 20220607
  2. CEFTRIAXONE [Concomitant]
     Active Substance: CEFTRIAXONE
     Dates: start: 20220605, end: 20220607
  3. HEPARIN [Concomitant]
     Active Substance: HEPARIN SODIUM
     Dates: start: 20220605, end: 20220610
  4. INSULIN NOS [Concomitant]
     Active Substance: INSULIN NOS
     Dates: start: 20220605, end: 20220610

REACTIONS (1)
  - Toxic epidermal necrolysis [None]

NARRATIVE: CASE EVENT DATE: 20220607
